FAERS Safety Report 9617971 (Version 2)
Quarter: 2013Q4

REPORT INFORMATION
  Report Type: Report from Study
  Country: US (occurrence: US)
  Receive Date: 20131011
  Receipt Date: 20131011
  Transmission Date: 20140711
  Serious: Yes (Hospitalization)
  Sender: FDA-Public Use
  Company Number: US-ABBVIE-13P-163-1139392-00

PATIENT
  Age: 74 Year
  Sex: Female

DRUGS (10)
  1. HUMIRA [Suspect]
     Indication: RHEUMATOID ARTHRITIS
     Dates: start: 20130522, end: 201308
  2. HUMIRA [Suspect]
     Dates: start: 20130926
  3. HYDROXYCHLOR [Concomitant]
     Indication: RHEUMATOID ARTHRITIS
     Route: 048
  4. HYDROCHLOROTHIAZIDE [Concomitant]
     Indication: HYPERTENSION
     Route: 048
  5. TOPAMAX [Concomitant]
     Indication: MIGRAINE
     Route: 048
  6. TOPAMAX [Concomitant]
     Indication: INSOMNIA
  7. ALPRAZOLAM [Concomitant]
     Indication: NERVOUSNESS
     Route: 048
  8. FOLIC ACID [Concomitant]
     Indication: SUPPLEMENTATION THERAPY
     Route: 048
  9. KLOR-CON [Concomitant]
     Indication: MINERAL SUPPLEMENTATION
     Route: 048
  10. PRISTIQ [Concomitant]
     Indication: DEPRESSION
     Route: 048

REACTIONS (12)
  - Asthenia [Recovered/Resolved]
  - Asthenia [Not Recovered/Not Resolved]
  - Urinary tract infection [Recovered/Resolved]
  - Blood potassium decreased [Recovered/Resolved]
  - Blood phosphorus decreased [Recovered/Resolved]
  - Asthenia [Recovered/Resolved]
  - Swelling [Not Recovered/Not Resolved]
  - Pain [Not Recovered/Not Resolved]
  - Asthenia [Not Recovered/Not Resolved]
  - Mobility decreased [Not Recovered/Not Resolved]
  - Fatigue [Not Recovered/Not Resolved]
  - Diarrhoea [Unknown]
